FAERS Safety Report 25146313 (Version 1)
Quarter: 2025Q2

REPORT INFORMATION
  Report Type: Spontaneous
  Country: FR (occurrence: FR)
  Receive Date: 20250401
  Receipt Date: 20250401
  Transmission Date: 20250717
  Serious: Yes (Hospitalization)
  Sender: ALEXION PHARMACEUTICALS
  Company Number: FR-ASTRAZENECA-202503GLO027476FR

PATIENT
  Age: 31 Year

DRUGS (12)
  1. QUETIAPINE FUMARATE [Suspect]
     Active Substance: QUETIAPINE FUMARATE
  2. DIAZEPAM [Suspect]
     Active Substance: DIAZEPAM
     Indication: Schizophrenia
  3. CLOBAZAM [Suspect]
     Active Substance: CLOBAZAM
     Route: 065
  4. AMISULPRIDE [Suspect]
     Active Substance: AMISULPRIDE
     Indication: Schizophrenia
  5. MIDOMAFETAMINE [Suspect]
     Active Substance: MIDOMAFETAMINE
     Route: 065
  6. CANNABIS SATIVA SUBSP. INDICA TOP [Suspect]
     Active Substance: CANNABIS SATIVA SUBSP. INDICA TOP
     Route: 065
  7. COCAINE [Suspect]
     Active Substance: COCAINE
  8. AMPHETAMINE [Suspect]
     Active Substance: AMPHETAMINE
     Route: 065
  9. METHAMPHETAMINE [Suspect]
     Active Substance: METHAMPHETAMINE
     Route: 065
  10. OLANZAPINE [Concomitant]
     Active Substance: OLANZAPINE
     Indication: Schizophrenia
     Route: 065
  11. PAROXETINE [Concomitant]
     Active Substance: PAROXETINE
     Indication: Schizophrenia
     Route: 065
  12. ZOLPIDEM [Concomitant]
     Active Substance: ZOLPIDEM TARTRATE
     Indication: Schizophrenia

REACTIONS (8)
  - Drug use disorder [Unknown]
  - Altered state of consciousness [Recovered/Resolved]
  - Headache [Recovered/Resolved]
  - Miosis [Recovered/Resolved]
  - Electrocardiogram QT prolonged [Recovered/Resolved]
  - Hypokalaemia [Recovered/Resolved]
  - Blood lactic acid increased [Recovered/Resolved]
  - Toxicity to various agents [Recovered/Resolved]
